FAERS Safety Report 5932731-6 (Version None)
Quarter: 2008Q4

REPORT INFORMATION
  Report Type: 
  Country: None (occurrence: None)
  Receive Date: 20081028
  Receipt Date: 20081014
  Transmission Date: 20090506
  Serious: Yes (Disabling, Other)
  Sender: FDA-Public Use
  Company Number: FR-ELI_LILLY_AND_COMPANY-FR200807006386

PATIENT
  Age: 74 Year
  Sex: Female
  Weight: 57 kg

DRUGS (3)
  1. EVISTA [Suspect]
     Indication: OSTEOPOROSIS
     Dosage: 1 BOX PER MONTH
     Route: 048
     Dates: start: 20020101
  2. ACETAMINOPHEN [Concomitant]
     Dosage: UNK, UNKNOWN
     Route: 048
     Dates: start: 20020101
  3. COLCHICINE [Concomitant]
     Indication: GOUT
     Dosage: UNK, UNKNOWN
     Route: 048
     Dates: start: 20020101

REACTIONS (5)
  - ARTHRALGIA [None]
  - CHONDROCALCINOSIS PYROPHOSPHATE [None]
  - JOINT EFFUSION [None]
  - OEDEMA PERIPHERAL [None]
  - OSTEOARTHRITIS [None]
